FAERS Safety Report 5229198-2 (Version None)
Quarter: 2007Q1

REPORT INFORMATION
  Report Type: 
  Country: None (occurrence: None)
  Receive Date: 20061201
  Receipt Date: 20060906
  Transmission Date: 20070707
  Serious: No
  Sender: FDA-Public Use
  Company Number: US200609001456

PATIENT
  Sex: Female

DRUGS (6)
  1. CYMBALTA [Suspect]
     Indication: DEPRESSION
     Dosage: 30 MG, DAILY (1/D); 60 MG, DAILY (1/D)
     Dates: start: 20060101
  2. NASACORT [Concomitant]
  3. LISINOPRIL [Concomitant]
  4. SYNTHROID [Concomitant]
  5. VITAMINS [Concomitant]
  6. POTASSIUM (POTASSIUM) [Concomitant]

REACTIONS (10)
  - EYE DISORDER [None]
  - FEELING ABNORMAL [None]
  - MUSCLE SPASMS [None]
  - MYDRIASIS [None]
  - NERVOUSNESS [None]
  - OCULAR HYPERAEMIA [None]
  - PUPILLARY DISORDER [None]
  - TREMOR [None]
  - URINARY HESITATION [None]
  - VISION BLURRED [None]
